FAERS Safety Report 9028525 (Version 2)
Quarter: 2013Q1

REPORT INFORMATION
  Report Type: Spontaneous
  Country: AT (occurrence: AT)
  Receive Date: 20130124
  Receipt Date: 20130213
  Transmission Date: 20140127
  Serious: Yes (Other)
  Sender: FDA-Public Use
  Company Number: AT-ASTRAZENECA-2013SE04547

PATIENT
  Age: 12938 Day
  Sex: Female
  Weight: 56 kg

DRUGS (1)
  1. VIMOVO [Suspect]
     Indication: BACK PAIN
     Dosage: 500/20 MG TWO TIMES A DAY (1-0-1)
     Route: 048
     Dates: start: 20121212, end: 20121222

REACTIONS (6)
  - Joint swelling [Recovering/Resolving]
  - Musculoskeletal stiffness [Recovering/Resolving]
  - Arthralgia [Not Recovered/Not Resolved]
  - Arthralgia [Recovering/Resolving]
  - Myalgia [Recovering/Resolving]
  - Drug dose omission [Unknown]
